FAERS Safety Report 25208247 (Version 1)
Quarter: 2025Q2

REPORT INFORMATION
  Report Type: Spontaneous
  Country: CN (occurrence: CN)
  Receive Date: 20250417
  Receipt Date: 20250417
  Transmission Date: 20250717
  Serious: Yes (Hospitalization, Other)
  Sender: CHEPLAPHARM
  Company Number: CN-CHEPLA-2025004928

PATIENT
  Age: 14 Year
  Sex: Female
  Weight: 37 kg

DRUGS (4)
  1. OLANZAPINE [Suspect]
     Active Substance: OLANZAPINE
     Indication: Depression
     Dosage: APPROVAL NUMBER: H20160497?DAILY DOSE: 2.5 MILLIGRAM
     Route: 048
     Dates: start: 20250326, end: 20250408
  2. FLUOXETINE HYDROCHLORIDE [Suspect]
     Active Substance: FLUOXETINE HYDROCHLORIDE
     Indication: Depression
     Dosage: DAILY DOSE: 40 MILLIGRAM
     Route: 048
     Dates: start: 20250326, end: 20250408
  3. QUETIAPINE FUMARATE [Suspect]
     Active Substance: QUETIAPINE FUMARATE
     Dosage: NATIONAL APPROVAL NUMBERH20030742?DAILY DOSE: 15 MILLIGRAM
     Route: 048
     Dates: start: 20250409, end: 20250409
  4. LORAZEPAM [Suspect]
     Active Substance: LORAZEPAM
     Dosage: APPROVAL NUMBERHC20150011?DAILY DOSE: 15 MILLIGRAM
     Route: 048
     Dates: start: 20250409, end: 20250409

REACTIONS (3)
  - Intentional overdose [Recovered/Resolved]
  - Dizziness [Recovered/Resolved]
  - Tachycardia [Recovered/Resolved]

NARRATIVE: CASE EVENT DATE: 20250409
